FAERS Safety Report 14998446 (Version 1)
Quarter: 2018Q2

REPORT INFORMATION
  Report Type: Spontaneous
  Country: CA (occurrence: CA)
  Receive Date: 20180611
  Receipt Date: 20180611
  Transmission Date: 20180711
  Serious: Yes (Hospitalization)
  Sender: FDA-Public Use
  Company Number: CA-BAXTER-2018BAX016649

PATIENT
  Age: 80 Year
  Sex: Female

DRUGS (3)
  1. EXTRANEAL [Suspect]
     Active Substance: CALCIUM CHLORIDE\ICODEXTRIN\MAGNESIUM CHLORIDE\SODIUM CHLORIDE\SODIUM LACTATE
     Indication: PERITONEAL DIALYSIS
     Route: 033
  2. IRON [Suspect]
     Active Substance: IRON
     Indication: PRODUCT USED FOR UNKNOWN INDICATION
     Route: 065
  3. DIANEAL W/ DEXTROSE 2.5% [Suspect]
     Active Substance: CALCIUM CHLORIDE\DEXTROSE\MAGNESIUM CHLORIDE\SODIUM CHLORIDE\SODIUM LACTATE
     Indication: PERITONEAL DIALYSIS
     Route: 033

REACTIONS (10)
  - Constipation [Unknown]
  - Peripheral swelling [Recovering/Resolving]
  - Ligament rupture [Unknown]
  - Myocardial infarction [Unknown]
  - Peritonitis [Unknown]
  - Arthritis [Unknown]
  - Thyroid disorder [Unknown]
  - Weight bearing difficulty [Unknown]
  - Fall [Unknown]
  - Bloody peritoneal effluent [Unknown]

NARRATIVE: CASE EVENT DATE: 2018
